FAERS Safety Report 7892634-7 (Version None)
Quarter: 2011Q4

REPORT INFORMATION
  Report Type: 
  Country: None (occurrence: None)
  Receive Date: 20111025
  Receipt Date: 20111012
  Transmission Date: 20120403
  Serious: Yes (Other)
  Sender: FDA-Public Use
  Company Number: 2011030096

PATIENT
  Age: 48 Year
  Sex: Female
  Weight: 142.8831 kg

DRUGS (21)
  1. VICODIN [Concomitant]
  2. INDOMETHACIN [Concomitant]
  3. ADVAIR HFA [Concomitant]
  4. SUPARTZ (HYALURONATE SODIUM) [Concomitant]
  5. CARTIA XT [Concomitant]
  6. SINGULAIR [Concomitant]
  7. LOSARTAN POTASSIUM [Concomitant]
  8. METFORMIN HCL [Concomitant]
  9. ATROVENT (IPRATROPIUM BROMJIDE) [Concomitant]
  10. ALBUTEROL HFA (SALBUTAMOL) [Concomitant]
  11. XANAX [Concomitant]
  12. FLONASE [Concomitant]
  13. CORTISONE ACETATE [Concomitant]
  14. SYNTHROID (ILEVOTHYROXINE SODIUM) [Concomitant]
  15. FLEXERIL [Concomitant]
  16. HIZENTRA [Suspect]
     Indication: HYPOGAMMAGLOBULINAEMIA
     Dosage: SUBCUTANEOUS (20 G 1X/WEEK, 100 ML 4-6 SITES OVER 1-2 HOURS SUBCUTANEOUS
     Route: 058
     Dates: start: 20110914
  17. HIZENTRA [Suspect]
     Indication: IMMUNODEFICIENCY
     Dosage: SUBCUTANEOUS (20 G 1X/WEEK, 100 ML 4-6 SITES OVER 1-2 HOURS SUBCUTANEOUS
     Route: 058
     Dates: start: 20110914
  18. HIZENTRA [Suspect]
     Indication: HYPOGAMMAGLOBULINAEMIA
     Dosage: SUBCUTANEOUS (20 G 1X/WEEK, 100 ML 4-6 SITES OVER 1-2 HOURS SUBCUTANEOUS
     Route: 058
     Dates: start: 20110525
  19. HIZENTRA [Suspect]
     Indication: IMMUNODEFICIENCY
     Dosage: SUBCUTANEOUS (20 G 1X/WEEK, 100 ML 4-6 SITES OVER 1-2 HOURS SUBCUTANEOUS
     Route: 058
     Dates: start: 20110525
  20. LASIX [Concomitant]
  21. GABAPENTIN [Concomitant]

REACTIONS (2)
  - ORGAN FAILURE [None]
  - SERUM SICKNESS [None]
